FAERS Safety Report 7247781-X (Version None)
Quarter: 2011Q1

REPORT INFORMATION
  Report Type: 
  Country: None (occurrence: None)
  Receive Date: 20110127
  Receipt Date: 20110114
  Transmission Date: 20110831
  Serious: Yes (Other)
  Sender: FDA-Public Use
  Company Number: US-ELI_LILLY_AND_COMPANY-US201101004035

PATIENT
  Sex: Female

DRUGS (7)
  1. NIASPAN [Concomitant]
     Dosage: UNK, UNKNOWN
  2. TRAZODONE [Concomitant]
     Dosage: UNK, DAILY (1/D)
  3. XANAX [Concomitant]
     Dosage: UNK, UNKNOWN
  4. CARVEDILOL [Concomitant]
     Dosage: UNK, UNKNOWN
  5. CYMBALTA [Suspect]
     Dosage: UNK, UNKNOWN
  6. SIMVASTATIN [Concomitant]
     Dosage: UNK, UNKNOWN
  7. GEODON [Concomitant]
     Dosage: UNK, UNKNOWN

REACTIONS (2)
  - BIPOLAR DISORDER [None]
  - BLOOD CHOLESTEROL INCREASED [None]
